FAERS Safety Report 6791306-X (Version None)
Quarter: 2010Q2

REPORT INFORMATION
  Report Type: 
  Country: None (occurrence: None)
  Receive Date: 20100624
  Receipt Date: 20100527
  Transmission Date: 20101027
  Serious: Yes (Other)
  Sender: FDA-Public Use
  Company Number: US-PFIZER INC-2010064996

PATIENT
  Sex: Female
  Weight: 117 kg

DRUGS (8)
  1. CHANTIX [Suspect]
     Indication: SMOKING CESSATION THERAPY
     Dosage: 0.5 MG, 1X/DAY
     Route: 048
     Dates: start: 20100514, end: 20100501
  2. CHANTIX [Suspect]
     Dosage: 1 MG, 2X/DAY
     Route: 048
     Dates: start: 20100501, end: 20100525
  3. SEROQUEL [Concomitant]
     Dosage: UNK
  4. PAXIL [Concomitant]
     Dosage: UNK
  5. KLONOPIN [Concomitant]
     Dosage: UNK
  6. NEURONTIN [Concomitant]
     Dosage: UNK
  7. LYRICA [Concomitant]
     Dosage: UNK
  8. ACIPHEX [Concomitant]
     Dosage: UNK

REACTIONS (7)
  - AGITATION [None]
  - DEPRESSION [None]
  - EUPHORIC MOOD [None]
  - HALLUCINATION, AUDITORY [None]
  - POLYDIPSIA [None]
  - SELF INJURIOUS BEHAVIOUR [None]
  - SUICIDE ATTEMPT [None]
